FAERS Safety Report 25890289 (Version 2)
Quarter: 2025Q4

REPORT INFORMATION
  Report Type: Spontaneous
  Country: JP (occurrence: JP)
  Receive Date: 20251007
  Receipt Date: 20251023
  Transmission Date: 20260117
  Serious: Yes (Life-Threatening, Other)
  Sender: ELI LILLY AND COMPANY
  Company Number: JP-ELI_LILLY_AND_COMPANY-JP202510002202

PATIENT

DRUGS (2)
  1. CYRAMZA [Suspect]
     Active Substance: RAMUCIRUMAB
     Indication: Gastric cancer
     Route: 042
  2. PACLITAXEL [Concomitant]
     Active Substance: PACLITAXEL
     Route: 042

REACTIONS (2)
  - Tumour haemorrhage [Unknown]
  - Malignant neoplasm progression [Unknown]
